FAERS Safety Report 8821031 (Version 1)
Quarter: 2012Q4

REPORT INFORMATION
  Report Type: 
  Country: IN (occurrence: IN)
  Receive Date: 20121002
  Receipt Date: 20121002
  Transmission Date: 20130627
  Serious: Yes (Other)
  Sender: FDA-Public Use
  Company Number: IN-WATSON-2012-16668

PATIENT
  Age: 35 Year
  Sex: Female

DRUGS (1)
  1. ZARAH [Suspect]
     Indication: ORAL CONTRACEPTION
     Dosage: UNK
     Route: 048

REACTIONS (8)
  - Renal infarct [Not Recovered/Not Resolved]
  - Haemodialysis [None]
  - Renal cortical necrosis [None]
  - Renal artery thrombosis [None]
  - Blood homocysteine increased [None]
  - Haemoglobin decreased [None]
  - Blood fibrinogen increased [None]
  - Fibrin D dimer increased [None]
